FAERS Safety Report 15276325 (Version 1)
Quarter: 2018Q3

REPORT INFORMATION
  Report Type: Spontaneous
  Country: US (occurrence: US)
  Receive Date: 20180728
  Receipt Date: 20180728
  Transmission Date: 20181010
  Serious: Yes (Hospitalization)
  Sender: FDA-Public Use
  Company Number: None

PATIENT
  Age: 44 Year
  Sex: Male
  Weight: 88.3 kg

DRUGS (4)
  1. ETOPOSIDE (VP?16) [Suspect]
     Active Substance: ETOPOSIDE
  2. TAXOL [Suspect]
     Active Substance: PACLITAXEL
     Dates: end: 20180605
  3. CARBOPLATIN. [Suspect]
     Active Substance: CARBOPLATIN
     Dates: end: 20180714
  4. IFOSFAMIDE. [Suspect]
     Active Substance: IFOSFAMIDE
     Dates: end: 20180607

REACTIONS (2)
  - Sinusitis [None]
  - Febrile neutropenia [None]

NARRATIVE: CASE EVENT DATE: 20180722
